APPROVED DRUG PRODUCT: CEFACLOR
Active Ingredient: CEFACLOR
Strength: EQ 250MG BASE
Dosage Form/Route: CAPSULE;ORAL
Application: A065350 | Product #001
Applicant: HIKMA PHARMACEUTICALS
Approved: Apr 3, 2007 | RLD: No | RS: No | Type: DISCN